FAERS Safety Report 17789218 (Version 4)
Quarter: 2022Q2

REPORT INFORMATION
  Report Type: Spontaneous
  Country: US (occurrence: US)
  Receive Date: 20200514
  Receipt Date: 20220411
  Transmission Date: 20220721
  Serious: No
  Sender: FDA-Public Use
  Company Number: US-PFIZER INC-2020192410

PATIENT
  Age: 75 Year
  Sex: Male
  Weight: 117.03 kg

DRUGS (1)
  1. EUCRISA [Suspect]
     Active Substance: CRISABOROLE
     Indication: Dermatitis contact
     Dosage: 2X/DAY (APPLY TWICE DAILY 3/4 INCH AMOUNT AND RUB ON HANDS)
     Dates: start: 20200424

REACTIONS (3)
  - Rash [Unknown]
  - Off label use [Unknown]
  - Drug ineffective for unapproved indication [Unknown]

NARRATIVE: CASE EVENT DATE: 20200424
